APPROVED DRUG PRODUCT: NORGESTREL AND ETHINYL ESTRADIOL
Active Ingredient: ETHINYL ESTRADIOL; NORGESTREL
Strength: 0.05MG;0.5MG
Dosage Form/Route: TABLET;ORAL-28
Application: A202875 | Product #001
Applicant: MYLAN LABORATORIES LTD
Approved: May 8, 2017 | RLD: No | RS: No | Type: DISCN